FAERS Safety Report 11788617 (Version 1)
Quarter: 2015Q4

REPORT INFORMATION
  Report Type: Spontaneous
  Country: US (occurrence: None)
  Receive Date: 20151130
  Receipt Date: 20151130
  Transmission Date: 20160305
  Serious: No
  Sender: FDA-Public Use
  Company Number: None

PATIENT
  Age: 41 Year
  Sex: Male
  Weight: 90.72 kg

DRUGS (2)
  1. REXULTI [Suspect]
     Active Substance: BREXPIPRAZOLE
     Indication: DEPRESSION
     Dosage: FOUR 0.5MG PILLS QD ONCE DAILY TAKEN BY MOUTH
     Route: 048
     Dates: start: 20130930, end: 20151014
  2. WELLBUTRIN 300XL [Concomitant]

REACTIONS (11)
  - Hyperhidrosis [None]
  - Therapy change [None]
  - Muscle twitching [None]
  - Agitation [None]
  - Dehydration [None]
  - Restlessness [None]
  - Dry mouth [None]
  - Cold sweat [None]
  - Chills [None]
  - Dyskinesia [None]
  - Feeling hot [None]

NARRATIVE: CASE EVENT DATE: 20151015
